FAERS Safety Report 7967623-4 (Version None)
Quarter: 2011Q4

REPORT INFORMATION
  Report Type: 
  Country: None (occurrence: None)
  Receive Date: 20111208
  Receipt Date: 20111208
  Transmission Date: 20120403
  Serious: Yes (Other)
  Sender: FDA-Public Use
  Company Number: None

PATIENT
  Age: 80 Year
  Sex: Male

DRUGS (6)
  1. NORTRIPTYLINE HCL [Concomitant]
  2. REVLIMID [Suspect]
     Indication: MULTIPLE MYELOMA
     Dosage: 15 MG EVERY OTHER DAY ORALLY
     Route: 048
     Dates: start: 20101101
  3. METOPROLOL TARTRATE [Concomitant]
  4. CALCIUM ACETATE [Concomitant]
  5. WARFARIN SODIUM [Concomitant]
  6. OMEPRAZOLE [Concomitant]

REACTIONS (1)
  - NEUTROPENIA [None]
